FAERS Safety Report 21876335 (Version 3)
Quarter: 2023Q1

REPORT INFORMATION
  Report Type: Report from Study
  Country: DK (occurrence: DK)
  Receive Date: 20230118
  Receipt Date: 20230201
  Transmission Date: 20230417
  Serious: Yes (Hospitalization)
  Sender: FDA-Public Use
  Company Number: DK-BEIGENE USA INC-BGN-2023-000198

PATIENT

DRUGS (12)
  1. ZANUBRUTINIB [Suspect]
     Active Substance: ZANUBRUTINIB
     Indication: Chronic lymphocytic leukaemia
     Dosage: 320 MILLIGRAM
     Route: 048
     Dates: start: 20220705, end: 20230108
  2. ZANUBRUTINIB [Suspect]
     Active Substance: ZANUBRUTINIB
     Indication: Richter^s syndrome
  3. TISLELIZUMAB [Suspect]
     Active Substance: TISLELIZUMAB
     Indication: Chronic lymphocytic leukaemia
     Dosage: 200 MILLIGRAM
     Route: 042
     Dates: start: 20220705
  4. TISLELIZUMAB [Suspect]
     Active Substance: TISLELIZUMAB
     Indication: Richter^s syndrome
  5. PANTOPRAZOLE SODIUM [Concomitant]
     Active Substance: PANTOPRAZOLE SODIUM
     Dosage: 80 MILLIGRAM
     Dates: start: 20211012
  6. CALCIUM\VITAMIN D [Concomitant]
     Active Substance: CALCIUM\VITAMIN D
     Dosage: 838 MILLIGRAM
     Dates: start: 20190226
  7. ASPIRIN [Concomitant]
     Active Substance: ASPIRIN
     Dosage: 75 MILLIGRAM
     Dates: start: 20211012, end: 20230109
  8. FOLIC ACID [Concomitant]
     Active Substance: FOLIC ACID
     Dosage: 5 MILLIGRAM
     Dates: start: 20211125
  9. FEXOFENADINE [Concomitant]
     Active Substance: FEXOFENADINE HYDROCHLORIDE
     Dosage: 120 MILLIGRAM
     Dates: start: 20130423
  10. Alminox [Concomitant]
     Dosage: 2400 MILLIGRAM
     Dates: start: 20220627
  11. MOVICOL [Concomitant]
     Active Substance: POLYETHYLENE GLYCOL 3350\POTASSIUM CHLORIDE\SODIUM BICARBONATE\SODIUM CHLORIDE
     Dosage: 3 BAGS
     Dates: start: 20220705
  12. BENDROFLUMETHIAZIDE\POTASSIUM CHLORIDE [Concomitant]
     Active Substance: BENDROFLUMETHIAZIDE\POTASSIUM CHLORIDE
     Dosage: 5755 MILLIGRAM
     Dates: start: 20220531

REACTIONS (1)
  - Cerebral haemorrhage [Recovered/Resolved with Sequelae]

NARRATIVE: CASE EVENT DATE: 20230108
